FAERS Safety Report 4557439-3 (Version None)
Quarter: 2005Q1

REPORT INFORMATION
  Report Type: 
  Country: None (occurrence: None)
  Receive Date: 20050118
  Receipt Date: 20050105
  Transmission Date: 20050727
  Serious: Yes (Death)
  Sender: FDA-Public Use
  Company Number: 2005-01-0368

PATIENT

DRUGS (2)
  1. TEMODAR [Suspect]
     Indication: BRONCHIAL CARCINOMA
     Dosage: 250 MG QDX5D ORAL
     Route: 048
  2. TEMODAR [Suspect]
     Indication: LUNG NEOPLASM MALIGNANT
     Dosage: 250 MG QDX5D ORAL
     Route: 048

REACTIONS (1)
  - DEATH [None]
